FAERS Safety Report 4490517-6 (Version None)
Quarter: 2004Q4

REPORT INFORMATION
  Report Type: 
  Country: None (occurrence: None)
  Receive Date: 20041102
  Receipt Date: 20041022
  Transmission Date: 20050328
  Serious: Yes (Other)
  Sender: FDA-Public Use
  Company Number: SE-BRISTOL-MYERS SQUIBB COMPANY-12747291

PATIENT
  Age: 62 Year
  Sex: Female

DRUGS (11)
  1. SENDOXAN [Suspect]
     Indication: BREAST CANCER
     Route: 042
     Dates: start: 20010305, end: 20010507
  2. METHOTREXATE [Suspect]
     Indication: BREAST CANCER
     Dates: start: 20010305, end: 20010507
  3. DOXORUBICIN HCL [Suspect]
     Indication: BREAST CANCER
     Dates: start: 20001204, end: 20010212
  4. TAMOXIFEN [Suspect]
     Indication: BREAST CANCER
     Route: 048
     Dates: start: 20000101, end: 20040101
  5. TAXOTERE [Suspect]
     Indication: BREAST CANCER
     Dates: start: 20001204, end: 20010212
  6. FLUOROURACIL [Suspect]
     Indication: BREAST CANCER
     Dosage: DOSE= MG/ML
     Route: 042
     Dates: start: 20010305, end: 20010507
  7. ORUDIS [Concomitant]
  8. CLARITIN [Concomitant]
  9. BRICANYL [Concomitant]
  10. SYMBICORT [Concomitant]
  11. SALAZOPYRIN [Concomitant]

REACTIONS (2)
  - CARDIAC FAILURE [None]
  - CARDIOMYOPATHY [None]
